FAERS Safety Report 24595477 (Version 1)
Quarter: 2024Q4

REPORT INFORMATION
  Report Type: Spontaneous
  Country: US (occurrence: US)
  Receive Date: 20241109
  Receipt Date: 20241109
  Transmission Date: 20250114
  Serious: Yes (Hospitalization, Other)
  Sender: ABBVIE
  Company Number: US-ABBVIE-5990230

PATIENT
  Sex: Female
  Weight: 68.038 kg

DRUGS (1)
  1. ARMOUR THYROID [Suspect]
     Active Substance: THYROID, PORCINE
     Indication: Hypothyroidism
     Dosage: FORM STRENGTH 90 MG?1 TAB EVERYDAY FROM MONDAY TO FRIDAY, AND TAKING HALF PILL OF 90MG TAB OF ARM...
     Route: 048
     Dates: start: 1962

REACTIONS (5)
  - Fall [Recovering/Resolving]
  - Memory impairment [Unknown]
  - Lymphoedema [Not Recovered/Not Resolved]
  - Cardiac disorder [Not Recovered/Not Resolved]
  - Osteomyelitis [Recovering/Resolving]

NARRATIVE: CASE EVENT DATE: 19660101
